FAERS Safety Report 25861639 (Version 4)
Quarter: 2025Q4

REPORT INFORMATION
  Report Type: Report from Study
  Country: US (occurrence: US)
  Receive Date: 20250930
  Receipt Date: 20251022
  Transmission Date: 20260118
  Serious: Yes (Hospitalization, Other)
  Sender: ACADIA PHARMACEUTICALS
  Company Number: US-ACADIA PHARMACEUTICALS INC.-ACA-2025-PIM-010693

PATIENT
  Sex: Male

DRUGS (3)
  1. NUPLAZID [Suspect]
     Active Substance: PIMAVANSERIN TARTRATE
     Indication: Parkinson^s disease psychosis
     Dosage: (PRESCRIBED 44 MG QD TOTAL)
     Route: 048
     Dates: start: 20230417
  2. NUPLAZID [Suspect]
     Active Substance: PIMAVANSERIN TARTRATE
     Dosage: 34 MILLIGRAM, QD
     Route: 048
  3. MODAFINIL [Concomitant]
     Active Substance: MODAFINIL

REACTIONS (8)
  - Brain contusion [Unknown]
  - Cervical spinal stenosis [Unknown]
  - Myelopathy [Unknown]
  - Hallucination [Not Recovered/Not Resolved]
  - Fall [Unknown]
  - Condition aggravated [Not Recovered/Not Resolved]
  - Gait disturbance [Not Recovered/Not Resolved]
  - Off label use [Not Recovered/Not Resolved]
